FAERS Safety Report 12475227 (Version 1)
Quarter: 2016Q2

REPORT INFORMATION
  Report Type: Spontaneous
  Country: US (occurrence: US)
  Receive Date: 20160617
  Receipt Date: 20160617
  Transmission Date: 20160815
  Serious: No
  Sender: FDA-Public Use
  Company Number: US-PFIZER INC-2016302910

PATIENT
  Age: 63 Year
  Sex: Male

DRUGS (1)
  1. VORICONAZOLE. [Suspect]
     Active Substance: VORICONAZOLE
     Indication: PULMONARY MYCOSIS
     Dosage: 200 MG, 2X/DAY

REACTIONS (5)
  - Cough [Not Recovered/Not Resolved]
  - White blood cell count abnormal [Recovering/Resolving]
  - Blood iron abnormal [Recovering/Resolving]
  - Red blood cell count abnormal [Recovering/Resolving]
  - Dyspnoea [Not Recovered/Not Resolved]
